FAERS Safety Report 7532396-6 (Version None)
Quarter: 2011Q2

REPORT INFORMATION
  Report Type: 
  Country: None (occurrence: None)
  Receive Date: 20110607
  Receipt Date: 20110607
  Transmission Date: 20111010
  Serious: Yes (Hospitalization)
  Sender: FDA-Public Use
  Company Number: None

PATIENT
  Sex: Male
  Weight: 61.2356 kg

DRUGS (7)
  1. NILOTINIB [Suspect]
     Indication: GASTROINTESTINAL STROMAL TUMOUR
     Dosage: 400MG BID DAILY PO
     Route: 048
     Dates: start: 20110317
  2. GLEEVEC [Suspect]
     Indication: GASTROINTESTINAL STROMAL TUMOUR
     Dosage: 400MG QD DAILY PO
     Route: 048
     Dates: start: 20110317
  3. ZYRTEC [Concomitant]
  4. ZOFRAN [Concomitant]
  5. MAGNESIUM OXIDE [Concomitant]
  6. FLEXERIL [Concomitant]
  7. ZANTAC [Concomitant]

REACTIONS (2)
  - GASTROENTERITIS [None]
  - DEHYDRATION [None]
